FAERS Safety Report 4475309-6 (Version None)
Quarter: 2004Q4

REPORT INFORMATION
  Report Type: 
  Country: None (occurrence: None)
  Receive Date: 20041012
  Receipt Date: 20040928
  Transmission Date: 20050328
  Serious: Yes (Hospitalization)
  Sender: FDA-Public Use
  Company Number: 2004236057US

PATIENT
  Age: 72 Year
  Sex: Female

DRUGS (7)
  1. CELEBREX [Suspect]
     Dosage: 100 MG, BID, ORAL
     Route: 048
  2. DILTIAZEM [Concomitant]
  3. LOVASTATIN [Concomitant]
  4. LANSOPRAZOLE [Concomitant]
  5. ENALAPRIL MALEATE [Concomitant]
  6. VITAMIN C [Concomitant]
  7. IRON [Concomitant]

REACTIONS (10)
  - ABDOMINAL PAIN [None]
  - DIAPHRAGMATIC DISORDER [None]
  - HAMARTOMA VASCULAR [None]
  - MUCOSAL EROSION [None]
  - NAUSEA [None]
  - NEUROMYOPATHY [None]
  - POSTOPERATIVE ADHESION [None]
  - SCAR [None]
  - SMALL INTESTINAL HAEMORRHAGE [None]
  - SMALL INTESTINAL STENOSIS [None]
